FAERS Safety Report 9554409 (Version 2)
Quarter: 2013Q4

REPORT INFORMATION
  Report Type: Spontaneous
  Country: FR (occurrence: FR)
  Receive Date: 20130925
  Receipt Date: 20131018
  Transmission Date: 20140711
  Serious: Yes (Hospitalization)
  Sender: FDA-Public Use
  Company Number: FR-009507513-1309FRA007298

PATIENT
  Age: 82 Year
  Sex: Female

DRUGS (2)
  1. TEMODAL [Suspect]
     Dosage: UNK
     Route: 048
     Dates: start: 20130422, end: 20130426
  2. TEMODAL [Suspect]
     Dosage: UNK
     Route: 048
     Dates: start: 20130521, end: 20130525

REACTIONS (1)
  - Aplasia [Recovered/Resolved]
